FAERS Safety Report 5184433-4 (Version None)
Quarter: 2006Q4

REPORT INFORMATION
  Report Type: 
  Country: None (occurrence: None)
  Receive Date: 20061220
  Receipt Date: 20060410
  Transmission Date: 20070319
  Serious: No
  Sender: FDA-Public Use
  Company Number: US-GLAXOSMITHKLINE-A0601063A

PATIENT
  Age: 18 Year
  Sex: Male

DRUGS (3)
  1. NICODERM CQ [Suspect]
     Dates: start: 20060405, end: 20060405
  2. NICODERM CQ [Suspect]
     Dates: start: 20060409, end: 20060409
  3. ADDERALL 10 [Concomitant]

REACTIONS (4)
  - DIZZINESS [None]
  - HEADACHE [None]
  - HEART RATE INCREASED [None]
  - MALAISE [None]
